FAERS Safety Report 17429729 (Version 1)
Quarter: 2020Q1

REPORT INFORMATION
  Report Type: Spontaneous
  Country: US (occurrence: US)
  Receive Date: 20200218
  Receipt Date: 20200218
  Transmission Date: 20200409
  Serious: Yes (Other)
  Sender: FDA-Public Use
  Company Number: US-ROCHE-2546429

PATIENT
  Sex: Female
  Weight: 40.86 kg

DRUGS (1)
  1. HERCEPTIN [Suspect]
     Active Substance: TRASTUZUMAB
     Indication: HER-2 POSITIVE BREAST CANCER
     Route: 042
     Dates: start: 2012, end: 2013

REACTIONS (7)
  - Retinal detachment [Not Recovered/Not Resolved]
  - Neoplasm malignant [Unknown]
  - Neuropathy peripheral [Unknown]
  - Cardiac disorder [Unknown]
  - Macular degeneration [Unknown]
  - Optic nerve injury [Unknown]
  - Blindness unilateral [Recovered/Resolved]
